FAERS Safety Report 6900086-6 (Version None)
Quarter: 2010Q3

REPORT INFORMATION
  Report Type: 
  Country: None (occurrence: None)
  Receive Date: 20100803
  Receipt Date: 20100728
  Transmission Date: 20110219
  Serious: Yes (Hospitalization)
  Sender: FDA-Public Use
  Company Number: AU-SANOFI-AVENTIS-2010SA044296

PATIENT
  Age: 64 Year
  Sex: Male

DRUGS (4)
  1. LANTUS [Suspect]
     Route: 058
     Dates: start: 20070724
  2. ASPIRIN [Concomitant]
  3. DIAFORMIN [Concomitant]
  4. DIAMICRON [Concomitant]

REACTIONS (2)
  - ANGIOPLASTY [None]
  - HYPERGLYCAEMIA [None]
